FAERS Safety Report 9767904 (Version 1)
Quarter: 2013Q4

REPORT INFORMATION
  Report Type: Spontaneous
  Country: US (occurrence: None)
  Receive Date: 20131213
  Receipt Date: 20131213
  Transmission Date: 20140711
  Serious: Yes (Other)
  Sender: FDA-Public Use
  Company Number: 1312-1549

PATIENT
  Age: 78 Year
  Sex: Female

DRUGS (1)
  1. EYLEA (AFLIBERCEPT) (INJECTION) (AFLIBERCEPT) [Suspect]
     Indication: AGE-RELATED MACULAR DEGENERATION
     Dosage: 2 MG, 1 IN 1 M, INTRAVEITREAL
     Dates: start: 20120512, end: 20130307

REACTIONS (4)
  - Non-infectious endophthalmitis [None]
  - Uveitis [None]
  - Visual acuity reduced [None]
  - Visual impairment [None]
